FAERS Safety Report 5099849-4 (Version None)
Quarter: 2006Q3

REPORT INFORMATION
  Report Type: 
  Country: None (occurrence: None)
  Receive Date: 20060908
  Receipt Date: 20060816
  Transmission Date: 20061208
  Serious: Yes (Disabling, Other)
  Sender: FDA-Public Use
  Company Number: AUWYE710816AUG06

PATIENT
  Sex: Female

DRUGS (8)
  1. ENBREL [Suspect]
     Indication: ANKYLOSING SPONDYLITIS
     Route: 058
     Dates: start: 20060720
  2. LOETTE [Concomitant]
     Route: 048
  3. COLOXYL WITH SENNA [Concomitant]
     Route: 065
  4. NEXIUM [Concomitant]
     Route: 065
  5. NAPROSYN [Concomitant]
     Route: 065
  6. MAGNESIUM [Concomitant]
     Route: 048
  7. PREDNISONE TAB [Concomitant]
     Route: 048
  8. CIPRAMIL [Concomitant]
     Route: 065

REACTIONS (2)
  - LOSS OF CONSCIOUSNESS [None]
  - PYREXIA [None]
